FAERS Safety Report 6519087-5 (Version None)
Quarter: 2009Q4

REPORT INFORMATION
  Report Type: 
  Country: None (occurrence: None)
  Receive Date: 20091228
  Receipt Date: 20091216
  Transmission Date: 20100525
  Serious: Yes (Other)
  Sender: FDA-Public Use
  Company Number: US-ROCHE-676362

PATIENT
  Sex: Female

DRUGS (10)
  1. AVASTIN [Suspect]
     Route: 042
     Dates: start: 20090901, end: 20091101
  2. TAMOXIFEN CITRATE [Suspect]
     Dosage: FREQ: DAILY
     Route: 048
  3. PREDNISONE [Concomitant]
     Dosage: STARTED 5-6 DAYS AGO
  4. LEXAPRO [Concomitant]
  5. CARVEDILOL [Concomitant]
  6. PHENERGAN HCL [Concomitant]
  7. COMPAZINE [Concomitant]
  8. VICODIN [Concomitant]
  9. XANAX [Concomitant]
  10. PAXIL [Concomitant]

REACTIONS (2)
  - MUSCULAR WEAKNESS [None]
  - PAIN IN EXTREMITY [None]
